FAERS Safety Report 26048902 (Version 3)
Quarter: 2025Q4

REPORT INFORMATION
  Report Type: Spontaneous
  Country: US (occurrence: US)
  Receive Date: 20251115
  Receipt Date: 20251221
  Transmission Date: 20260117
  Serious: No
  Sender: HETERO
  Company Number: US-HETERO-HET2025US06836

PATIENT
  Sex: Male

DRUGS (1)
  1. ATORVASTATIN [Suspect]
     Active Substance: ATORVASTATIN
     Indication: Product use in unapproved indication
     Dosage: UNK
     Route: 065

REACTIONS (1)
  - Product quality issue [Unknown]
